FAERS Safety Report 5415358-4 (Version None)
Quarter: 2007Q3

REPORT INFORMATION
  Report Type: 
  Country: None (occurrence: None)
  Receive Date: 20070815
  Receipt Date: 20070809
  Transmission Date: 20080115
  Serious: Yes (Other)
  Sender: FDA-Public Use
  Company Number: AU-AVENTIS-200717365GDDC

PATIENT
  Age: 57 Year
  Sex: Male

DRUGS (9)
  1. LANTUS [Suspect]
     Dates: start: 20070212
  2. AUTOPEN INSULIN INJECTION PEN [Suspect]
  3. NITRAZEPAM [Concomitant]
     Dosage: DOSE: UNK
  4. OXYNORM [Concomitant]
     Dosage: DOSE: UNK
  5. ENDONE [Concomitant]
     Dosage: DOSE: UNK
  6. ENDEP [Concomitant]
     Dosage: DOSE: UNK
  7. ASTRIX [Concomitant]
     Dosage: DOSE: UNK
  8. CALTRATE                           /00108001/ [Concomitant]
     Dosage: DOSE: UNK
  9. LOSEC                              /00661201/ [Concomitant]
     Dosage: DOSE: UNK

REACTIONS (3)
  - CONDITION AGGRAVATED [None]
  - DYSPNOEA [None]
  - PROSTATE CANCER [None]
